FAERS Safety Report 6655361-X (Version None)
Quarter: 2010Q1

REPORT INFORMATION
  Report Type: 
  Country: None (occurrence: None)
  Receive Date: 20100329
  Receipt Date: 20100318
  Transmission Date: 20100710
  Serious: Yes (Other)
  Sender: FDA-Public Use
  Company Number: PHHY2010DE17135

PATIENT
  Sex: Male

DRUGS (2)
  1. CLOZAPINE [Suspect]
     Dosage: 400 MG/DAY
     Route: 048
     Dates: start: 20060101, end: 20080101
  2. CLOZAPINE [Suspect]
     Dosage: 400 MG/DAY
     Route: 048
     Dates: start: 20080101

REACTIONS (4)
  - CARDIOMYOPATHY [None]
  - INFECTION [None]
  - MITRAL VALVE REPAIR [None]
  - PYREXIA [None]
